FAERS Safety Report 20561063 (Version 1)
Quarter: 2022Q1

REPORT INFORMATION
  Report Type: Spontaneous
  Country: US (occurrence: US)
  Receive Date: 20220307
  Receipt Date: 20220307
  Transmission Date: 20220423
  Serious: Yes (Other)
  Sender: FDA-Public Use
  Company Number: US-PFIZER INC-202200349464

PATIENT
  Age: 66 Year
  Sex: Male

DRUGS (1)
  1. RAPAMUNE [Suspect]
     Active Substance: SIROLIMUS
     Dosage: RAPAMUNE 1MG, TAKE 5 TABLETS ONCE A DAY

REACTIONS (2)
  - Renal transplant [Unknown]
  - Aneurysm [Unknown]
